FAERS Safety Report 15550441 (Version 2)
Quarter: 2019Q1

REPORT INFORMATION
  Report Type: Spontaneous
  Country: CZ (occurrence: CZ)
  Receive Date: 20181025
  Receipt Date: 20190114
  Transmission Date: 20190417
  Serious: Yes (Hospitalization, Other)
  Sender: FDA-Public Use
  Company Number: CZ-TEVA-2018-CZ-968533

PATIENT
  Sex: Female

DRUGS (6)
  1. RITUXIMAB. [Suspect]
     Active Substance: RITUXIMAB
     Dosage: TWO CYCLES OF RITUXIMAB AFTER 5 R-CHOP CYCLES WERE ADMINISTERED
  2. CYCLOPHOSPHAMIDE. [Suspect]
     Active Substance: CYCLOPHOSPHAMIDE
     Indication: DIFFUSE LARGE B-CELL LYMPHOMA
     Dosage: PART OF R-CHOP REGIMEN
     Route: 065
     Dates: start: 20130330, end: 2013
  3. PREDNISOLONE. [Suspect]
     Active Substance: PREDNISOLONE
     Indication: DIFFUSE LARGE B-CELL LYMPHOMA
     Dosage: PART OF R-CHOP REGIMEN
     Route: 065
     Dates: start: 20130330, end: 2013
  4. VINCRISTINE [Suspect]
     Active Substance: VINCRISTINE
     Indication: DIFFUSE LARGE B-CELL LYMPHOMA
     Dosage: PART OF R-CHOP REGIMEN
     Route: 042
     Dates: start: 20130330, end: 2013
  5. RITUXIMAB. [Suspect]
     Active Substance: RITUXIMAB
     Indication: DIFFUSE LARGE B-CELL LYMPHOMA
     Dosage: PART OF R-CHOP REGIMEN
     Route: 065
     Dates: start: 20130330, end: 2013
  6. DOXORUBICIN [Suspect]
     Active Substance: DOXORUBICIN
     Indication: DIFFUSE LARGE B-CELL LYMPHOMA
     Dosage: PART OF R-CHOP REGIMEN
     Dates: start: 20130330, end: 2013

REACTIONS (4)
  - Polyneuropathy [Unknown]
  - Hypertension [Unknown]
  - Atrial fibrillation [Unknown]
  - Tumour lysis syndrome [Recovered/Resolved]

NARRATIVE: CASE EVENT DATE: 2013
